FAERS Safety Report 23745049 (Version 2)
Quarter: 2024Q3

REPORT INFORMATION
  Report Type: Spontaneous
  Country: US (occurrence: US)
  Receive Date: 20240415
  Receipt Date: 20240701
  Transmission Date: 20241016
  Serious: No
  Sender: BAUSCH AND LOMB
  Company Number: US-BAUSCHBL-2024BNL004304

PATIENT
  Sex: Female

DRUGS (1)
  1. MIEBO [Suspect]
     Active Substance: PERFLUOROHEXYLOCTANE
     Indication: Dry eye
     Route: 047

REACTIONS (6)
  - Blepharitis [Unknown]
  - Abnormal sensation in eye [Unknown]
  - Vision blurred [Unknown]
  - Condition aggravated [Unknown]
  - Product container issue [Unknown]
  - Product packaging quantity issue [Unknown]
